FAERS Safety Report 8141820-X (Version None)
Quarter: 2012Q1

REPORT INFORMATION
  Report Type: 
  Country: None (occurrence: None)
  Receive Date: 20120216
  Receipt Date: 20120206
  Transmission Date: 20120608
  Serious: Yes (Death, Other)
  Sender: FDA-Public Use
  Company Number: US-ELI_LILLY_AND_COMPANY-US201201005886

PATIENT
  Sex: Female

DRUGS (5)
  1. PERFOROMIST [Concomitant]
     Route: 045
  2. FORTEO [Suspect]
     Indication: OSTEOPOROSIS
     Dosage: 20 UG, QD
     Route: 065
     Dates: start: 20120103
  3. ALBUTEROL [Concomitant]
     Route: 045
  4. FUROSEMIDE [Concomitant]
  5. DILTIAZEM HCL [Concomitant]

REACTIONS (2)
  - CHRONIC OBSTRUCTIVE PULMONARY DISEASE [None]
  - MALAISE [None]
